FAERS Safety Report 23539551 (Version 1)
Quarter: 2024Q1

REPORT INFORMATION
  Report Type: Spontaneous
  Country: US (occurrence: US)
  Receive Date: 20240219
  Receipt Date: 20240219
  Transmission Date: 20240409
  Serious: No
  Sender: FDA-Public Use
  Company Number: US-CTI BIOPHARMA-2024US04427

PATIENT

DRUGS (2)
  1. VONJO [Suspect]
     Active Substance: PACRITINIB
     Indication: Myelofibrosis
     Dosage: 100 MG, BID
     Route: 048
     Dates: start: 20231201
  2. JAKAFI [Concomitant]
     Active Substance: RUXOLITINIB

REACTIONS (7)
  - Crying [Unknown]
  - Depression [Unknown]
  - Stomatitis [Unknown]
  - Fatigue [Unknown]
  - Dry mouth [Unknown]
  - Platelet count increased [Unknown]
  - Cough [Unknown]
